FAERS Safety Report 7356693-2 (Version None)
Quarter: 2011Q1

REPORT INFORMATION
  Report Type: 
  Country: None (occurrence: None)
  Receive Date: 20110316
  Receipt Date: 20110311
  Transmission Date: 20110831
  Serious: Yes (Life-Threatening, Other)
  Sender: FDA-Public Use
  Company Number: PHHY2011JP20518

PATIENT
  Sex: Male
  Weight: 49 kg

DRUGS (2)
  1. VALSARTAN [Suspect]
     Indication: HYPERTENSION
     Dosage: 80 MG, QD
     Dates: start: 20081224, end: 20100305
  2. MENEST [Concomitant]
     Dosage: 200 MG, UNK
     Route: 048
     Dates: start: 20081224

REACTIONS (2)
  - NEPHROSCLEROSIS [None]
  - BLOOD POTASSIUM INCREASED [None]
